FAERS Safety Report 5326211-9 (Version None)
Quarter: 2007Q2

REPORT INFORMATION
  Report Type: 
  Country: None (occurrence: None)
  Receive Date: 20070516
  Receipt Date: 20070509
  Transmission Date: 20071010
  Serious: Yes (Hospitalization)
  Sender: FDA-Public Use
  Company Number: ES-ASTRAZENECA-2007AC00866

PATIENT
  Age: 95 Year
  Sex: Female

DRUGS (3)
  1. ATACAND [Suspect]
     Indication: ESSENTIAL HYPERTENSION
     Route: 048
     Dates: end: 20060513
  2. ALDACTONE [Suspect]
     Indication: ESSENTIAL HYPERTENSION
     Route: 048
     Dates: end: 20060513
  3. DIGOXIN [Suspect]
     Dosage: UNITS RG
     Route: 048
     Dates: end: 20060513

REACTIONS (2)
  - HYPERKALAEMIA [None]
  - STUPOR [None]
